FAERS Safety Report 9859869 (Version 1)
Quarter: 2014Q1

REPORT INFORMATION
  Report Type: Spontaneous
  Country: US (occurrence: US)
  Receive Date: 20140131
  Receipt Date: 20140131
  Transmission Date: 20141002
  Serious: Yes (Death, Disabling)
  Sender: FDA-Public Use
  Company Number: US-GE HEALTHCARE MEDICAL DIAGNOSTICS-OSCN-PR-0902S-0058

PATIENT
  Age: 73 Year
  Sex: Male

DRUGS (32)
  1. OMNISCAN [Suspect]
     Indication: PRODUCT USED FOR UNKNOWN INDICATION
  2. GADOLINIUM (UNSPECIFIED) [Suspect]
     Indication: PRODUCT USED FOR UNKNOWN INDICATION
     Dates: start: 20050808, end: 20050808
  3. GADOLINIUM (UNSPECIFIED) [Suspect]
     Dates: start: 20050804, end: 20050804
  4. GADOLINIUM (UNSPECIFIED) [Suspect]
     Dates: start: 20050805, end: 20050805
  5. GADOLINIUM (UNSPECIFIED) [Suspect]
     Dates: start: 20050809, end: 20050809
  6. MAGNEVIST [Suspect]
     Indication: PRODUCT USED FOR UNKNOWN INDICATION
     Dates: start: 20030604, end: 20030604
  7. MAGNEVIST [Suspect]
     Indication: HYPERTENSION
     Dates: start: 20041005, end: 20041005
  8. MAGNEVIST [Suspect]
     Indication: PRODUCT USED FOR UNKNOWN INDICATION
     Route: 042
     Dates: start: 20050303, end: 20050303
  9. MAGNEVIST [Suspect]
     Indication: PRODUCT USED FOR UNKNOWN INDICATION
     Route: 042
     Dates: start: 20050303, end: 20050303
  10. OPTIMARK [Suspect]
     Indication: PRODUCT USED FOR UNKNOWN INDICATION
  11. MULTIHANCE [Suspect]
     Indication: PRODUCT USED FOR UNKNOWN INDICATION
  12. PROHANCE [Suspect]
     Indication: PRODUCT USED FOR UNKNOWN INDICATION
  13. CAPTOPRIL [Concomitant]
  14. LASIX [Concomitant]
  15. TOPROL XL [Concomitant]
  16. DOXAZOSIN [Concomitant]
  17. LIPITOR [Concomitant]
  18. ARANESP [Concomitant]
  19. PLAVIX [Concomitant]
  20. BECONASE [Concomitant]
  21. COLACE [Concomitant]
  22. ATROVENT [Concomitant]
  23. ADVAIR [Concomitant]
  24. AMBIEN [Concomitant]
  25. CARDURA [Concomitant]
  26. ROXICET [Concomitant]
  27. SENNA [Concomitant]
  28. LISINOPRIL [Concomitant]
  29. LABETALOL HYDROCHLORIDE [Concomitant]
  30. NEPHROCAPS [Concomitant]
  31. SINGULAR [Concomitant]
  32. SPIRIVA [Concomitant]

REACTIONS (1)
  - Nephrogenic systemic fibrosis [Fatal]
